FAERS Safety Report 13625161 (Version 1)
Quarter: 2017Q2

REPORT INFORMATION
  Report Type: Spontaneous
  Country: US (occurrence: US)
  Receive Date: 20170608
  Receipt Date: 20170608
  Transmission Date: 20170830
  Serious: Yes (Other)
  Sender: FDA-Public Use
  Company Number: US-TEVA-775256USA

PATIENT
  Sex: Female

DRUGS (2)
  1. PROVIGIL [Suspect]
     Active Substance: MODAFINIL
  2. NUVIGIL [Suspect]
     Active Substance: ARMODAFINIL

REACTIONS (2)
  - Suicidal ideation [Unknown]
  - Expired product administered [Unknown]
